FAERS Safety Report 8999302 (Version 1)
Quarter: 2013Q1

REPORT INFORMATION
  Report Type: Spontaneous
  Country: US (occurrence: US)
  Receive Date: 20130103
  Receipt Date: 20130103
  Transmission Date: 20140127
  Serious: No
  Sender: FDA-Public Use
  Company Number: US-BAYER-2012-136268

PATIENT
  Age: 61 Year
  Sex: Female

DRUGS (3)
  1. CIPRO [Suspect]
  2. VALIUM [Concomitant]
  3. CELEBREX [Concomitant]
     Dosage: 1 DF, QD

REACTIONS (1)
  - Drug hypersensitivity [None]
